FAERS Safety Report 17580776 (Version 1)
Quarter: 2020Q1

REPORT INFORMATION
  Report Type: Spontaneous
  Country: US (occurrence: US)
  Receive Date: 20200325
  Receipt Date: 20200325
  Transmission Date: 20200409
  Serious: No
  Sender: FDA-Public Use
  Company Number: US-ALK-ABELLO A/S-2020AA000788

PATIENT

DRUGS (2)
  1. AMOXICILLIN. [Concomitant]
     Active Substance: AMOXICILLIN
     Indication: ALLERGY TEST
     Route: 048
  2. PRE-PEN [Suspect]
     Active Substance: BENZYLPENICILLOYL POLYLYSINE
     Indication: PRODUCT USED FOR UNKNOWN INDICATION

REACTIONS (2)
  - False negative investigation result [Unknown]
  - Rash [Unknown]
